FAERS Safety Report 6580220-0 (Version None)
Quarter: 2010Q1

REPORT INFORMATION
  Report Type: 
  Country: None (occurrence: None)
  Receive Date: 20100203
  Receipt Date: 20100126
  Transmission Date: 20100710
  Serious: Yes (Life-Threatening, Hospitalization)
  Sender: FDA-Public Use
  Company Number: 2010SP005365

PATIENT
  Age: 50 Year
  Sex: Male

DRUGS (2)
  1. NANDROLONE DECANOATE [Suspect]
  2. ERYTHROPOIETIN (ERYTHROPOIETIN) [Suspect]

REACTIONS (10)
  - CARDIOGENIC SHOCK [None]
  - CORONARY ARTERY THROMBOSIS [None]
  - DRUG ABUSE [None]
  - EJECTION FRACTION DECREASED [None]
  - ELECTROCARDIOGRAM ST SEGMENT ELEVATION [None]
  - HAEMATOCRIT INCREASED [None]
  - HAEMOGLOBIN INCREASED [None]
  - HEART TRANSPLANT [None]
  - MYOCARDIAL INFARCTION [None]
  - VENTRICULAR SEPTAL DEFECT [None]
